FAERS Safety Report 18690493 (Version 2)
Quarter: 2021Q1

REPORT INFORMATION
  Report Type: Spontaneous
  Country: IN (occurrence: IN)
  Receive Date: 20201231
  Receipt Date: 20210104
  Transmission Date: 20210419
  Serious: Yes (Other)
  Sender: FDA-Public Use
  Company Number: IN-BAXTER-2020BAX026947

PATIENT
  Age: 53 Year
  Sex: Female
  Weight: 52 kg

DRUGS (1)
  1. DOXIL [Suspect]
     Active Substance: DOXORUBICIN HYDROCHLORIDE
     Indication: OVARIAN CANCER
     Dosage: DOXORUBICIN PREPARED IN 5% DEXTROSE AT 42 DEGREE
     Route: 033

REACTIONS (3)
  - Hyperglycaemia [Unknown]
  - Lactic acidosis [Unknown]
  - Hyperthermia [Unknown]
